FAERS Safety Report 12409388 (Version 2)
Quarter: 2016Q2

REPORT INFORMATION
  Report Type: Spontaneous
  Country: US (occurrence: US)
  Receive Date: 20160526
  Receipt Date: 20160627
  Transmission Date: 20160815
  Serious: Yes (Hospitalization, Other)
  Sender: FDA-Public Use
  Company Number: US-ASTRAZENECA-2016SE55911

PATIENT
  Age: 78 Year
  Sex: Female
  Weight: 42.4 kg

DRUGS (4)
  1. RIFAMPICIN [Interacting]
     Active Substance: RIFAMPIN
     Dosage: ONCE DAILY
     Route: 048
  2. SILDENAFIL CITRATE. [Interacting]
     Active Substance: SILDENAFIL CITRATE
     Dosage: ONCE DAILY
     Route: 048
  3. ESOMEPRAZOLE [Suspect]
     Active Substance: ESOMEPRAZOLE
     Route: 048
  4. ITRACONAZOLE. [Interacting]
     Active Substance: ITRACONAZOLE
     Dosage: ONCE DAILY
     Route: 048

REACTIONS (2)
  - Drug interaction [Unknown]
  - Dyspnoea [Recovering/Resolving]

NARRATIVE: CASE EVENT DATE: 20160510
